FAERS Safety Report 11608490 (Version 2)
Quarter: 2015Q4

REPORT INFORMATION
  Report Type: Report from Study
  Country: US (occurrence: US)
  Receive Date: 20151007
  Receipt Date: 20151012
  Transmission Date: 20160304
  Serious: Yes (Other)
  Sender: FDA-Public Use
  Company Number: US-GILEAD-2015-0175502

PATIENT
  Age: 65 Year
  Sex: Female

DRUGS (1)
  1. RANOLAZINE [Suspect]
     Active Substance: RANOLAZINE
     Indication: ANGINA PECTORIS
     Dosage: 500 MG, UNK
     Route: 048

REACTIONS (5)
  - Stent placement [Recovered/Resolved]
  - Memory impairment [Not Recovered/Not Resolved]
  - Stent malfunction [Not Recovered/Not Resolved]
  - Chest pain [Not Recovered/Not Resolved]
  - Angina pectoris [Unknown]
